FAERS Safety Report 14374930 (Version 5)
Quarter: 2018Q1

REPORT INFORMATION
  Report Type: Spontaneous
  Country: US (occurrence: US)
  Receive Date: 20180111
  Receipt Date: 20180216
  Transmission Date: 20180509
  Serious: No
  Sender: FDA-Public Use
  Company Number: US-PFIZER INC-2018009243

PATIENT
  Age: 71 Year
  Sex: Male

DRUGS (2)
  1. CAVERJECT IMPULSE [Suspect]
     Active Substance: ALPROSTADIL
     Indication: DIABETES MELLITUS
     Dosage: 20 UG, UNK
  2. CAVERJECT IMPULSE [Suspect]
     Active Substance: ALPROSTADIL
     Indication: ELDERLY
     Dosage: 20 UG, UNK

REACTIONS (3)
  - Drug ineffective [Unknown]
  - Device defective [Unknown]
  - Product quality issue [Unknown]
